FAERS Safety Report 10017894 (Version 1)
Quarter: 2014Q1

REPORT INFORMATION
  Report Type: Spontaneous
  Country: US (occurrence: US)
  Receive Date: 20140318
  Receipt Date: 20140318
  Transmission Date: 20141002
  Serious: No
  Sender: FDA-Public Use
  Company Number: US-BRISTOL-MYERS SQUIBB COMPANY-18862284

PATIENT
  Age: 59 Year
  Sex: Male
  Weight: 55.33 kg

DRUGS (6)
  1. ERBITUX [Suspect]
     Indication: THROAT CANCER
     Dates: start: 201212
  2. LISINOPRIL [Concomitant]
  3. CARVEDILOL [Concomitant]
     Indication: BLOOD PRESSURE
  4. CARVEDILOL [Concomitant]
     Indication: BLOOD CHOLESTEROL
  5. SIMVASTATIN [Concomitant]
     Indication: BLOOD PRESSURE
  6. SIMVASTATIN [Concomitant]
     Indication: BLOOD CHOLESTEROL

REACTIONS (1)
  - Rash [Recovered/Resolved]
